FAERS Safety Report 9168803 (Version 2)
Quarter: 2013Q1

REPORT INFORMATION
  Report Type: Report from Study
  Country: DE (occurrence: DE)
  Receive Date: 20130318
  Receipt Date: 20130326
  Transmission Date: 20140127
  Serious: Yes (Hospitalization)
  Sender: FDA-Public Use
  Company Number: DE-PFIZER INC-2013077016

PATIENT
  Age: 58 Year
  Sex: Male
  Weight: 81.5 kg

DRUGS (8)
  1. IRINOTECAN HCL [Suspect]
     Indication: COLORECTAL CANCER
     Dosage: 180 MG/M2, EVERY 2 WEEKS
     Route: 042
     Dates: start: 20090901, end: 20100817
  2. FLUOROURACIL [Suspect]
     Indication: COLORECTAL CANCER
     Dosage: 2400+400 MG/M2, EVERY 2 WEEKS
     Route: 042
     Dates: start: 20090901
  3. FLUOROURACIL [Suspect]
     Dosage: 1200 MG/M2, EVERY 2 WEEKS
     Dates: start: 20100831
  4. BEVACIZUMAB [Suspect]
     Indication: COLORECTAL CANCER
     Dosage: 5 MG/KG, EVERY 2 WEEKS
     Route: 042
     Dates: start: 20090901, end: 20100817
  5. FOLINIC ACID [Suspect]
     Indication: COLORECTAL CANCER
     Dosage: 400 MG/M2, UNK
     Route: 042
     Dates: start: 20090901
  6. FOLINIC ACID [Suspect]
     Dosage: 200 MG/M2, EVERY 2 WEEKS
  7. CETUXIMAB [Suspect]
     Indication: COLORECTAL CANCER
     Dosage: 250 MG/M2, EVERY 2 WEEKS
     Route: 042
     Dates: start: 20101207
  8. OXALIPLATIN [Concomitant]
     Indication: COLORECTAL CANCER
     Dosage: 85 MG/M2, EVERY 2 WEEKS
     Route: 042
     Dates: start: 20100831

REACTIONS (1)
  - Osteoarthritis [Recovered/Resolved]
